FAERS Safety Report 9126922 (Version 1)
Quarter: 2013Q1

REPORT INFORMATION
  Report Type: Spontaneous
  Country: IL (occurrence: IL)
  Receive Date: 20130228
  Receipt Date: 20130228
  Transmission Date: 20140127
  Serious: No
  Sender: FDA-Public Use
  Company Number: PHHY2013IL018555

PATIENT
  Age: 51 Year
  Sex: Male

DRUGS (11)
  1. TASIGNA [Suspect]
     Indication: CHRONIC MYELOID LEUKAEMIA
     Dosage: 300 MG BID (150 MG X 4)
     Route: 048
     Dates: start: 201207
  2. DOXAZOSIN MESYLATE [Concomitant]
  3. LERCANIDIPINE HYDROCHLORIDE [Concomitant]
  4. ATENOLOL [Concomitant]
     Dosage: 50 MG, BID
  5. LOSARTAN POTASSIUM [Concomitant]
     Dosage: 50 MG, BID
  6. DESLORATADINE [Concomitant]
  7. MONTELUKAST SODIUM [Concomitant]
  8. FLUTICASONE PROPIONATE W/SALMETEROL XINAFOATE [Concomitant]
  9. MESALAZINE [Concomitant]
  10. VIT D [Concomitant]
  11. FERROUS FUMARATE W/FOLIC ACID [Concomitant]

REACTIONS (18)
  - Venous insufficiency [Unknown]
  - Hyperkeratosis [Unknown]
  - Skin plaque [Unknown]
  - Scab [Unknown]
  - Ocular hyperaemia [Unknown]
  - Renal impairment [Unknown]
  - Blood creatinine increased [Recovering/Resolving]
  - Oedema peripheral [Unknown]
  - Pruritus [Unknown]
  - Eczema [Unknown]
  - Erythema [Unknown]
  - Nausea [Recovering/Resolving]
  - Vomiting [Recovering/Resolving]
  - Weight fluctuation [Recovering/Resolving]
  - Decreased appetite [Recovering/Resolving]
  - Dyspepsia [Not Recovered/Not Resolved]
  - Cough [Recovering/Resolving]
  - Incorrect drug administration duration [Unknown]
